FAERS Safety Report 8603757-9 (Version None)
Quarter: 2012Q3

REPORT INFORMATION
  Report Type: 
  Country: None (occurrence: None)
  Receive Date: 20120817
  Receipt Date: 20120810
  Transmission Date: 20120928
  Serious: No
  Sender: FDA-Public Use
  Company Number: US-ASTRAZENECA-2012SE56845

PATIENT
  Age: 47 Year
  Sex: Female
  Weight: 61.2 kg

DRUGS (2)
  1. NEXIUM [Suspect]
     Indication: ABDOMINAL DISCOMFORT
     Route: 048
     Dates: start: 20100101
  2. LORAZEM [Concomitant]

REACTIONS (3)
  - DRY MOUTH [None]
  - OFF LABEL USE [None]
  - PARAESTHESIA [None]
